FAERS Safety Report 9829801 (Version 1)
Quarter: 2014Q1

REPORT INFORMATION
  Report Type: Report from Study
  Country: CZ (occurrence: CZ)
  Receive Date: 20140120
  Receipt Date: 20140120
  Transmission Date: 20141002
  Serious: Yes (Hospitalization)
  Sender: FDA-Public Use
  Company Number: CZ-ROCHE-1334206

PATIENT
  Sex: Female
  Weight: 66 kg

DRUGS (3)
  1. PEGASYS [Suspect]
     Indication: CHRONIC HEPATITIS C
     Route: 065
  2. COPEGUS [Suspect]
     Indication: CHRONIC HEPATITIS C
     Route: 065
  3. COPEGUS [Suspect]
     Dosage: DOSE REDUCED AFTER 8TH WEEKS OF TREATMENT
     Route: 065

REACTIONS (5)
  - Genital haemorrhage [Unknown]
  - Fatigue [Unknown]
  - Exercise tolerance decreased [Unknown]
  - Body temperature increased [Unknown]
  - Dry skin [Unknown]
